FAERS Safety Report 7607888-1 (Version None)
Quarter: 2011Q3

REPORT INFORMATION
  Report Type: 
  Country: None (occurrence: None)
  Receive Date: 20110714
  Receipt Date: 20110629
  Transmission Date: 20111222
  Serious: No
  Sender: FDA-Public Use
  Company Number: US-BIOGENIDEC-2011BI024302

PATIENT
  Age: 38 Year
  Sex: Male

DRUGS (9)
  1. ASCORBIC ACID [Concomitant]
     Route: 048
     Dates: start: 20091022
  2. TYSABRI [Suspect]
     Indication: MULTIPLE SCLEROSIS
     Route: 042
     Dates: start: 20090430, end: 20110602
  3. EFFEXOR XR [Concomitant]
     Route: 048
     Dates: start: 20091022
  4. NAPROXEN (ALEVE) [Concomitant]
     Indication: MUSCULOSKELETAL PAIN
     Route: 048
  5. ATENOLOL [Concomitant]
     Route: 048
  6. MULTI-VITAMINS [Concomitant]
     Route: 048
  7. VITAMIN D [Concomitant]
     Route: 048
  8. LOTREL [Concomitant]
     Route: 048
     Dates: start: 20091022
  9. NUVIGIL [Concomitant]
     Route: 048
     Dates: start: 20110502

REACTIONS (2)
  - MOLE EXCISION [None]
  - DRUG INEFFECTIVE [None]
